FAERS Safety Report 8037119-2 (Version None)
Quarter: 2012Q1

REPORT INFORMATION
  Report Type: 
  Country: None (occurrence: None)
  Receive Date: 20120111
  Receipt Date: 20120109
  Transmission Date: 20120608
  Serious: Yes (Other)
  Sender: FDA-Public Use
  Company Number: US-PFIZER INC-2012006937

PATIENT
  Sex: Female
  Weight: 99 kg

DRUGS (4)
  1. FINGOLIMOD [Suspect]
     Indication: MULTIPLE SCLEROSIS
     Dosage: UNK
  2. CHANTIX [Suspect]
     Indication: SMOKING CESSATION THERAPY
     Dosage: 0.5 MG, DAILY
     Route: 048
  3. XANAX [Concomitant]
     Indication: NERVOUS SYSTEM DISORDER
     Dosage: 1 MG, 3X/DAY
  4. PROZAC [Concomitant]
     Indication: NERVOUS SYSTEM DISORDER
     Dosage: UNK, DAILY

REACTIONS (2)
  - STRESS [None]
  - EYE DISORDER [None]
